FAERS Safety Report 5453188-8 (Version None)
Quarter: 2007Q3

REPORT INFORMATION
  Report Type: 
  Country: None (occurrence: None)
  Receive Date: 20070914
  Receipt Date: 20070907
  Transmission Date: 20080115
  Serious: Yes (Other)
  Sender: FDA-Public Use
  Company Number: PT-MERCK-0709PRT00004

PATIENT
  Age: 40 Year
  Sex: Male

DRUGS (2)
  1. VYTORIN [Suspect]
     Indication: DYSLIPIDAEMIA
     Route: 048
  2. [THERAPY UNSPECIFIED] [Concomitant]
     Indication: TYPE 2 DIABETES MELLITUS
     Route: 048

REACTIONS (1)
  - MICROALBUMINURIA [None]
